FAERS Safety Report 8583904-8 (Version None)
Quarter: 2012Q3

REPORT INFORMATION
  Report Type: 
  Country: None (occurrence: None)
  Receive Date: 20120810
  Receipt Date: 20120805
  Transmission Date: 20120928
  Serious: Yes (Congenital Anomaly)
  Sender: FDA-Public Use
  Company Number: US-009507513-1208USA003764

PATIENT

DRUGS (2)
  1. ISENTRESS [Suspect]
     Dosage: 800 MG, QD
     Route: 048
     Dates: start: 20090707
  2. COMBIVIR [Suspect]
     Dosage: 2 DF, UNK
     Route: 048
     Dates: start: 20090707

REACTIONS (6)
  - MICROSTOMIA [None]
  - LOW SET EARS [None]
  - FOETAL EXPOSURE DURING PREGNANCY [None]
  - FACIAL ASYMMETRY [None]
  - NOSE DEFORMITY [None]
  - CHROMOSOMAL MUTATION [None]
